FAERS Safety Report 9851527 (Version 1)
Quarter: 2014Q1

REPORT INFORMATION
  Report Type: Spontaneous
  Country: US (occurrence: US)
  Receive Date: 20140129
  Receipt Date: 20140129
  Transmission Date: 20141002
  Serious: No
  Sender: FDA-Public Use
  Company Number: US-BIOGENIDEC-2014BI007962

PATIENT
  Age: 24 Year
  Sex: Male

DRUGS (1)
  1. AVONEX [Suspect]
     Indication: MULTIPLE SCLEROSIS
     Route: 030
     Dates: start: 20131231

REACTIONS (5)
  - Dysuria [Not Recovered/Not Resolved]
  - Aphagia [Not Recovered/Not Resolved]
  - Hypophagia [Unknown]
  - Constipation [Not Recovered/Not Resolved]
  - Vomiting [Unknown]
